FAERS Safety Report 8532613-X (Version None)
Quarter: 2012Q3

REPORT INFORMATION
  Report Type: 
  Country: None (occurrence: None)
  Receive Date: 20120724
  Receipt Date: 20120712
  Transmission Date: 20120928
  Serious: Yes (Hospitalization, Other)
  Sender: FDA-Public Use
  Company Number: JP-AMGEN-JPNSP2012036732

PATIENT
  Age: 74 Year
  Sex: Female

DRUGS (7)
  1. ENBREL [Suspect]
     Indication: RHEUMATOID ARTHRITIS
     Dosage: 25 MG, WEEKLY
     Route: 058
     Dates: start: 20120301, end: 20120613
  2. RHEUMATREX [Suspect]
     Indication: RHEUMATOID ARTHRITIS
     Dosage: 6 MG, WEEKLY
     Route: 048
     Dates: start: 20111110, end: 20120607
  3. PREDNISOLONE [Concomitant]
     Dosage: 1 DF, 2X/DAY
     Route: 048
     Dates: start: 20111110, end: 20120321
  4. RIMATIL [Concomitant]
     Dosage: 1 DF, 2X/DAY
     Dates: start: 20111110, end: 20120321
  5. ENBREL [Suspect]
     Dosage: 25 MG, WEEKLY
     Route: 058
     Dates: start: 20120705
  6. TIZANIDINE HYDROCHLORIDE [Concomitant]
     Dosage: UNK
     Route: 065
     Dates: end: 20120606
  7. PREDNISOLONE [Concomitant]
     Dosage: 1 DF, 1X/DAY
     Dates: start: 20120322, end: 20120425

REACTIONS (5)
  - TREMOR [None]
  - DIARRHOEA [None]
  - PRURITUS [None]
  - DYSGEUSIA [None]
  - VOMITING [None]
